FAERS Safety Report 5770695-9 (Version None)
Quarter: 2008Q2

REPORT INFORMATION
  Report Type: 
  Country: None (occurrence: None)
  Receive Date: 20080613
  Receipt Date: 20080509
  Transmission Date: 20081010
  Serious: No
  Sender: FDA-Public Use
  Company Number: US-ABBOTT-08P-163-0451335-00

PATIENT
  Sex: Female
  Weight: 115.9 kg

DRUGS (12)
  1. HUMIRA [Suspect]
     Indication: COLITIS ULCERATIVE
     Route: 058
     Dates: start: 20071101
  2. LEVOTHYROXINE SODIUM [Concomitant]
     Indication: HYPOTHYROIDISM
     Route: 048
  3. PREDNISONE TAB [Concomitant]
     Indication: COLITIS ULCERATIVE
     Route: 048
  4. LIALDA [Concomitant]
     Indication: COLITIS ULCERATIVE
  5. NARINE [Concomitant]
     Indication: HYPERSENSITIVITY
     Route: 048
  6. MONTELUKAST SODIUM [Concomitant]
     Indication: HYPERSENSITIVITY
     Route: 048
  7. FUROSEMIDE [Concomitant]
     Indication: FLUID RETENTION
     Route: 048
  8. MODAFINIL [Concomitant]
     Indication: FIBROMYALGIA
     Dosage: 50-100 MILLIGRAM AS NEEDED
  9. MODAFINIL [Concomitant]
     Indication: INSOMNIA
  10. SERETIDE [Concomitant]
     Indication: ASTHMA
     Dosage: 250/50
  11. ALPRAZOLAM [Concomitant]
     Indication: INSOMNIA
     Dosage: 1/2 TABLET AT BED TIME
     Route: 048
  12. PROBIOTICS [Concomitant]
     Indication: COLITIS ULCERATIVE

REACTIONS (6)
  - INCREASED APPETITE [None]
  - INJECTION SITE DISCHARGE [None]
  - INJECTION SITE ERYTHEMA [None]
  - INJECTION SITE PRURITUS [None]
  - INJECTION SITE URTICARIA [None]
  - WEIGHT INCREASED [None]
